FAERS Safety Report 6218096-3 (Version None)
Quarter: 2009Q2

REPORT INFORMATION
  Report Type: 
  Country: None (occurrence: None)
  Receive Date: 20090608
  Receipt Date: 20090527
  Transmission Date: 20091009
  Serious: Yes (Other)
  Sender: FDA-Public Use
  Company Number: PHHY2009JP21851

PATIENT
  Age: 58 Year
  Sex: Female

DRUGS (2)
  1. CYCLOSPORINE [Suspect]
     Indication: POLYCHONDRITIS
     Dosage: UNK
  2. TEGRETOL [Interacting]
     Indication: POST HERPETIC NEURALGIA
     Dosage: 200 MG/DAILY

REACTIONS (3)
  - CONDITION AGGRAVATED [None]
  - IMMUNOSUPPRESSANT DRUG LEVEL DECREASED [None]
  - POLYCHONDRITIS [None]
